FAERS Safety Report 14121250 (Version 2)
Quarter: 2018Q3

REPORT INFORMATION
  Report Type: Spontaneous
  Country: GB (occurrence: GB)
  Receive Date: 20171024
  Receipt Date: 20180912
  Transmission Date: 20181010
  Serious: Yes (Hospitalization)
  Sender: FDA-Public Use
  Company Number: GB-SA-2017SA204392

PATIENT
  Sex: Male

DRUGS (4)
  1. PRALUENT [Suspect]
     Active Substance: ALIROCUMAB
     Dosage: 150 MG,QOW
     Route: 058
  2. ALIROCUMAB PREFILLED PEN [Suspect]
     Active Substance: ALIROCUMAB
  3. PRALUENT [Suspect]
     Active Substance: ALIROCUMAB
     Dosage: 150 MG,QOW
     Route: 058
  4. ALIROCUMAB PREFILLED PEN [Suspect]
     Active Substance: ALIROCUMAB

REACTIONS (3)
  - Drug dose omission [Unknown]
  - Cardiac disorder [Unknown]
  - Memory impairment [Unknown]
